FAERS Safety Report 4263861-5 (Version None)
Quarter: 2004Q1

REPORT INFORMATION
  Report Type: 
  Country: None (occurrence: None)
  Receive Date: 20040102
  Receipt Date: 20031219
  Transmission Date: 20041129
  Serious: Yes (Other)
  Sender: FDA-Public Use
  Company Number: S03-BRA-05171-01

PATIENT
  Age: 69 Year
  Sex: Male

DRUGS (6)
  1. LEXAPRO [Suspect]
     Indication: DEPRESSION
     Dosage: 10 MG QD PO
     Route: 048
     Dates: start: 20031105, end: 20031127
  2. HIDANTAL (PHENYTOIN) [Concomitant]
  3. ANLODIPINO (AMLODIPINE) [Concomitant]
  4. PROPRANOLOL [Concomitant]
  5. CLONAZEPAM [Concomitant]
  6. CLORANA (HYDROCHLOROTHIAZIDE) [Concomitant]

REACTIONS (1)
  - CONVULSION [None]
